FAERS Safety Report 8594837-5 (Version None)
Quarter: 2012Q3

REPORT INFORMATION
  Report Type: 
  Country: None (occurrence: None)
  Receive Date: 20120815
  Receipt Date: 20120809
  Transmission Date: 20120928
  Serious: No
  Sender: FDA-Public Use
  Company Number: 2012SP002248

PATIENT
  Age: 52 Year
  Sex: Female

DRUGS (2)
  1. LATUDA [Suspect]
     Indication: SCHIZOPHRENIA
     Route: 048
     Dates: start: 20110101
  2. IBUPROFEN [Concomitant]
     Indication: PAIN

REACTIONS (3)
  - SWOLLEN TONGUE [None]
  - DYSTONIA [None]
  - WEIGHT DECREASED [None]
